FAERS Safety Report 22820463 (Version 2)
Quarter: 2023Q4

REPORT INFORMATION
  Report Type: Report from Study
  Country: CL (occurrence: CL)
  Receive Date: 20230814
  Receipt Date: 20231101
  Transmission Date: 20240110
  Serious: Yes (Other)
  Sender: FDA-Public Use
  Company Number: CL-002147023-NVSC2023CL009830

PATIENT
  Age: 24 Year
  Sex: Female

DRUGS (2)
  1. COSENTYX [Suspect]
     Active Substance: SECUKINUMAB
     Indication: Psoriasis
     Dosage: 300 MG, QMO
     Route: 058
     Dates: start: 20220808, end: 20230228
  2. METHOTREXATE [Suspect]
     Active Substance: METHOTREXATE
     Indication: Product used for unknown indication
     Dosage: UNK (8 PILLS)
     Route: 048

REACTIONS (16)
  - Haemorrhage [Unknown]
  - Alopecia [Unknown]
  - Liver disorder [Unknown]
  - Pain [Unknown]
  - Facial pain [Unknown]
  - Pain in extremity [Unknown]
  - Back pain [Unknown]
  - Quality of life decreased [Unknown]
  - Depressed mood [Unknown]
  - Sleep disorder [Unknown]
  - Psoriasis [Recovering/Resolving]
  - Skin atrophy [Unknown]
  - Scab [Unknown]
  - Skin plaque [Unknown]
  - Pruritus [Unknown]
  - Therapeutic product effect incomplete [Unknown]
